FAERS Safety Report 6579244-9 (Version None)
Quarter: 2010Q1

REPORT INFORMATION
  Report Type: 
  Country: None (occurrence: None)
  Receive Date: 20100212
  Receipt Date: 20100204
  Transmission Date: 20100710
  Serious: Yes (Other)
  Sender: FDA-Public Use
  Company Number: US-PFIZER INC-2010016161

PATIENT
  Sex: Female
  Weight: 77.11 kg

DRUGS (3)
  1. CELEBREX [Suspect]
     Indication: SPINAL OSTEOARTHRITIS
     Dosage: UNK
     Dates: start: 20050101
  2. CELEBREX [Suspect]
     Indication: OEDEMA PERIPHERAL
  3. XYZAL [Concomitant]
     Indication: MULTIPLE ALLERGIES
     Dosage: UNK

REACTIONS (4)
  - HEPATIC ENZYME INCREASED [None]
  - KNEE OPERATION [None]
  - MOVEMENT DISORDER [None]
  - PLEURISY [None]
